FAERS Safety Report 14677556 (Version 1)
Quarter: 2018Q1

REPORT INFORMATION
  Report Type: Spontaneous
  Country: US (occurrence: US)
  Receive Date: 20180324
  Receipt Date: 20180324
  Transmission Date: 20180509
  Serious: Yes (Hospitalization)
  Sender: FDA-Public Use
  Company Number: None

PATIENT
  Age: 58 Year
  Sex: Male

DRUGS (8)
  1. HUMIRA [Suspect]
     Active Substance: ADALIMUMAB
     Indication: PSORIASIS
     Route: 058
     Dates: start: 2016, end: 201803
  2. ALDACTONE [Concomitant]
     Active Substance: SPIRONOLACTONE
  3. ASA [Concomitant]
     Active Substance: ASPIRIN
  4. MAG-OX [Concomitant]
     Active Substance: MAGNESIUM OXIDE
  5. LISINOPRIL. [Concomitant]
     Active Substance: LISINOPRIL
  6. TORSEMIDE. [Concomitant]
     Active Substance: TORSEMIDE
  7. BRILINTA [Concomitant]
     Active Substance: TICAGRELOR
  8. METFORMIN [Concomitant]
     Active Substance: METFORMIN HYDROCHLORIDE

REACTIONS (1)
  - Myocardial infarction [None]

NARRATIVE: CASE EVENT DATE: 201706
